FAERS Safety Report 4789002-3 (Version None)
Quarter: 2005Q4

REPORT INFORMATION
  Report Type: 
  Country: None (occurrence: None)
  Receive Date: 20051004
  Receipt Date: 20050921
  Transmission Date: 20060501
  Serious: Yes (Other)
  Sender: FDA-Public Use
  Company Number: 2005133413

PATIENT
  Age: 67 Year
  Sex: Male

DRUGS (3)
  1. DIFLUCAN [Suspect]
     Indication: FUNGAL INFECTION
     Dosage: 400 MG (400 MG, 1 IN 1 D) , ORAL
     Route: 048
     Dates: start: 20050913
  2. COUMADIN [Suspect]
     Indication: ATRIAL FIBRILLATION
     Dosage: 5 MG (5 MG, 1 IN 1 D), ORAL
     Route: 048
  3. ALL OTHER THERAPEUTIC PRODUCTS (ALL OTHER THERAPEUTIC PRODUCTS) [Concomitant]

REACTIONS (2)
  - DRUG INTERACTION [None]
  - INTERNATIONAL NORMALISED RATIO INCREASED [None]
